FAERS Safety Report 5339791-4 (Version None)
Quarter: 2007Q2

REPORT INFORMATION
  Report Type: 
  Country: None (occurrence: None)
  Receive Date: 20070525
  Receipt Date: 20070514
  Transmission Date: 20071010
  Serious: Yes (Hospitalization)
  Sender: FDA-Public Use
  Company Number: CERZ-11711

PATIENT
  Age: 14 Year
  Sex: Female

DRUGS (1)
  1. CEREZYME [Suspect]
     Indication: GAUCHER'S DISEASE
     Dosage: 4400 UNITS Q2WKS IV
     Route: 042
     Dates: start: 20050121

REACTIONS (10)
  - ATRIAL FIBRILLATION [None]
  - CARDIAC ARREST [None]
  - CARDIAC MURMUR [None]
  - CATHETER SITE PAIN [None]
  - HEADACHE [None]
  - PAIN IN EXTREMITY [None]
  - PHARYNGOLARYNGEAL PAIN [None]
  - PULMONARY THROMBOSIS [None]
  - THROMBOSIS [None]
  - VENTRICULAR EXTRASYSTOLES [None]
